FAERS Safety Report 8158323-9 (Version None)
Quarter: 2012Q1

REPORT INFORMATION
  Report Type: 
  Country: None (occurrence: None)
  Receive Date: 20120217
  Receipt Date: 20120206
  Transmission Date: 20120608
  Serious: Yes (Other)
  Sender: FDA-Public Use
  Company Number: US-GDP-11412737

PATIENT
  Age: 14 Year
  Sex: Female

DRUGS (1)
  1. DIFFERIN [Suspect]
     Indication: ACNE
     Dosage: TOPICAL
     Route: 061

REACTIONS (4)
  - BURNS THIRD DEGREE [None]
  - SKIN IRRITATION [None]
  - BLISTER [None]
  - BURNS SECOND DEGREE [None]
